FAERS Safety Report 7338987-X (Version None)
Quarter: 2011Q1

REPORT INFORMATION
  Report Type: 
  Country: None (occurrence: None)
  Receive Date: 20110308
  Receipt Date: 20110228
  Transmission Date: 20110831
  Serious: Yes (Life-Threatening, Other)
  Sender: FDA-Public Use
  Company Number: FR-MEDIMMUNE-MEDI-0012428

PATIENT
  Sex: Male

DRUGS (2)
  1. SYNAGIS [Suspect]
     Dates: end: 20110201
  2. LIDOCAINE PRILOCAINE [Concomitant]
     Dates: start: 20110201, end: 20110201

REACTIONS (4)
  - LOCALISED OEDEMA [None]
  - ANGIOEDEMA [None]
  - FACE OEDEMA [None]
  - COUGH [None]
